FAERS Safety Report 10006696 (Version 1)
Quarter: 2014Q1

REPORT INFORMATION
  Report Type: Spontaneous
  Country: US (occurrence: US)
  Receive Date: 20140313
  Receipt Date: 20140313
  Transmission Date: 20141002
  Serious: Yes (Other)
  Sender: FDA-Public Use
  Company Number: US-PFIZER INC-2014068378

PATIENT
  Age: 50 Year
  Sex: Male

DRUGS (2)
  1. VIAGRA [Suspect]
     Dosage: 1/2 TABLET ONE TIME
     Dates: start: 2004, end: 2004
  2. VIAGRA [Suspect]
     Dosage: 1 TABLET ONE TIME
     Dates: start: 2004, end: 2004

REACTIONS (4)
  - Intentional drug misuse [Unknown]
  - Erection increased [Unknown]
  - Painful erection [Unknown]
  - Drug ineffective [Unknown]
